FAERS Safety Report 4389914-9 (Version None)
Quarter: 2004Q3

REPORT INFORMATION
  Report Type: 
  Country: None (occurrence: None)
  Receive Date: 20040701
  Receipt Date: 20040617
  Transmission Date: 20050211
  Serious: Yes (Hospitalization)
  Sender: FDA-Public Use
  Company Number: 2004040807

PATIENT
  Age: 68 Year
  Sex: Female

DRUGS (1)
  1. SERTRALINE (SERTRALINE) [Suspect]
     Indication: DEPRESSION
     Dosage: (100 MG), ORAL
     Route: 048
     Dates: start: 19940101

REACTIONS (7)
  - AGGRESSION [None]
  - AGITATION [None]
  - DELIRIUM [None]
  - DEMENTIA [None]
  - HOMICIDAL IDEATION [None]
  - IRRITABILITY [None]
  - OBSESSIVE-COMPULSIVE DISORDER [None]
